FAERS Safety Report 5757918-7 (Version None)
Quarter: 2008Q2

REPORT INFORMATION
  Report Type: 
  Country: None (occurrence: None)
  Receive Date: 20080602
  Receipt Date: 20080602
  Transmission Date: 20081010
  Serious: Yes (Hospitalization, Other)
  Sender: FDA-Public Use
  Company Number: None

PATIENT
  Age: 44 Year
  Sex: Female
  Weight: 90.7194 kg

DRUGS (2)
  1. CYMBALTA [Suspect]
     Indication: MAJOR DEPRESSION
     Dosage: 20MG, 30MG, 60MG OR MORE DAILY PO
     Route: 048
     Dates: start: 19970815, end: 20080601
  2. CYMBALTA [Suspect]
     Indication: THYROID DISORDER
     Dosage: 20MG, 30MG, 60MG OR MORE DAILY PO
     Route: 048
     Dates: start: 19970815, end: 20080601

REACTIONS (3)
  - DRUG WITHDRAWAL SYNDROME [None]
  - THINKING ABNORMAL [None]
  - VOMITING [None]
